FAERS Safety Report 6544149-6 (Version None)
Quarter: 2010Q1

REPORT INFORMATION
  Report Type: 
  Country: None (occurrence: None)
  Receive Date: 20100119
  Receipt Date: 20100119
  Transmission Date: 20100710
  Serious: Yes (Other)
  Sender: FDA-Public Use
  Company Number: None

PATIENT
  Age: 66 Year
  Sex: Female
  Weight: 81.6475 kg

DRUGS (1)
  1. TYLENOL [Suspect]
     Indication: MYALGIA
     Dosage: TWO CAPLETS EVERY 8 HOURS PO
     Route: 048
     Dates: start: 20090921, end: 20090921

REACTIONS (5)
  - ERYTHEMA [None]
  - NAUSEA [None]
  - PRODUCT QUALITY ISSUE [None]
  - RASH ERYTHEMATOUS [None]
  - VOMITING [None]
